FAERS Safety Report 13401937 (Version 1)
Quarter: 2017Q2

REPORT INFORMATION
  Report Type: Spontaneous
  Country: US (occurrence: US)
  Receive Date: 20170404
  Receipt Date: 20170404
  Transmission Date: 20170830
  Serious: No
  Sender: FDA-Public Use
  Company Number: US-SHIRE-US201707437

PATIENT
  Sex: Male

DRUGS (5)
  1. VYVANSE [Suspect]
     Active Substance: LISDEXAMFETAMINE DIMESYLATE
     Indication: ATTENTION DEFICIT/HYPERACTIVITY DISORDER
     Dosage: UNK UNK (HALF A 60 MG), OTHER (ON ALTERNATE DAYS)
     Route: 048
  2. HERBAL NOS W/MINERALS NOS/VITAMINS NOS [Concomitant]
     Indication: PRODUCT USED FOR UNKNOWN INDICATION
     Dosage: UNK, FEW TIMES A WEEK OR ON ALTERNATE DAYS OF VYVANSE ADMINISTRATION
     Route: 065
  3. GINKGO BILOBA [Concomitant]
     Active Substance: GINKGO
     Indication: PRODUCT USED FOR UNKNOWN INDICATION
     Dosage: UNK, FEW TIMES A WEEK OR ON ALTERNATE DAYS OF VYVANSE ADMINISTRATION
     Route: 065
  4. FISH OIL [Concomitant]
     Active Substance: FISH OIL
     Indication: PRODUCT USED FOR UNKNOWN INDICATION
     Dosage: UNK, FEW TIMES A WEEK OR ON ALTERNATE DAYS OF VYVANSE ADMINISTRATION
     Route: 065
  5. GINSENG COMPLEX                    /08711601/ [Concomitant]
     Indication: PRODUCT USED FOR UNKNOWN INDICATION
     Dosage: UNK, FEW TIMES A WEEK OR ON ALTERNATE DAYS OF VYVANSE ADMINISTRATION
     Route: 065

REACTIONS (3)
  - Diarrhoea [Not Recovered/Not Resolved]
  - Wrong technique in product usage process [Not Recovered/Not Resolved]
  - Inappropriate schedule of drug administration [Not Recovered/Not Resolved]
